FAERS Safety Report 9412623 (Version 1)
Quarter: 2013Q3

REPORT INFORMATION
  Report Type: Spontaneous
  Country: US (occurrence: US)
  Receive Date: 20130722
  Receipt Date: 20130722
  Transmission Date: 20140515
  Serious: No
  Sender: FDA-Public Use
  Company Number: US-TARO-2012P1045967

PATIENT
  Age: 25 Year
  Sex: Female

DRUGS (4)
  1. CLOTRIMAZOLE/BETAMETHASONE DIPROPIONATE CREAM [Suspect]
     Route: 061
     Dates: start: 201206, end: 201206
  2. FLUCONAZOLE [Suspect]
     Dates: start: 201206
  3. MONISTAT 7 [Suspect]
     Route: 061
     Dates: start: 201206, end: 201206
  4. UNSPECIFIED BIRTH CONTROL PILLS [Concomitant]

REACTIONS (2)
  - Application site pain [Recovered/Resolved]
  - Hypersensitivity [Recovered/Resolved]
